FAERS Safety Report 6568794-7 (Version None)
Quarter: 2010Q1

REPORT INFORMATION
  Report Type: 
  Country: None (occurrence: None)
  Receive Date: 20100203
  Receipt Date: 20100126
  Transmission Date: 20100710
  Serious: Yes (Hospitalization)
  Sender: FDA-Public Use
  Company Number: US-B.I. PHARMACEUTICALS,INC./RIDGEFIELD-2010-BP-00974BP

PATIENT
  Age: 62 Year
  Sex: Female

DRUGS (3)
  1. DULCOLAX [Suspect]
     Indication: CONSTIPATION
     Dosage: 15 MG
     Route: 048
     Dates: start: 20091106, end: 20091106
  2. KLONOPIN [Concomitant]
     Indication: PANIC DISORDER
  3. PROZAC [Concomitant]
     Indication: PANIC DISORDER

REACTIONS (7)
  - DIZZINESS [None]
  - FAECAL INCONTINENCE [None]
  - HAEMATOCHEZIA [None]
  - HYPOTENSION [None]
  - LOSS OF CONSCIOUSNESS [None]
  - RECTAL HAEMORRHAGE [None]
  - SHOCK [None]
